FAERS Safety Report 19951252 (Version 1)
Quarter: 2021Q4

REPORT INFORMATION
  Report Type: Spontaneous
  Country: FR (occurrence: FR)
  Receive Date: 20211013
  Receipt Date: 20211013
  Transmission Date: 20220303
  Serious: Yes (Hospitalization, Other)
  Sender: FDA-Public Use
  Company Number: None

PATIENT
  Age: 72 Year
  Sex: Female

DRUGS (2)
  1. BRAFTOVI [Suspect]
     Active Substance: ENCORAFENIB
     Indication: Metastatic malignant melanoma
     Dosage: 450 MG
     Route: 048
     Dates: start: 20210710, end: 20210726
  2. MEKTOVI [Suspect]
     Active Substance: BINIMETINIB
     Indication: Metastatic malignant melanoma
     Dosage: 90 MG
     Route: 048
     Dates: start: 20210710, end: 20210726

REACTIONS (2)
  - Neuropathy peripheral [Recovering/Resolving]
  - Myalgia [Recovered/Resolved]

NARRATIVE: CASE EVENT DATE: 20210720
